FAERS Safety Report 23227533 (Version 4)
Quarter: 2024Q1

REPORT INFORMATION
  Report Type: Report from Study
  Country: CN (occurrence: CN)
  Receive Date: 20231124
  Receipt Date: 20240328
  Transmission Date: 20240409
  Serious: No
  Sender: FDA-Public Use
  Company Number: CN-009507513-2311CHN008010

PATIENT
  Age: 60 Year
  Sex: Male
  Weight: 75.5 kg

DRUGS (9)
  1. ERTUGLIFLOZIN [Suspect]
     Active Substance: ERTUGLIFLOZIN
     Indication: Diabetes mellitus
     Dosage: UNK
     Route: 048
     Dates: start: 20220316
  2. METFORMIN HYDROCHLORIDE\SITAGLIPTIN PHOSPHATE [Concomitant]
     Active Substance: METFORMIN HYDROCHLORIDE\SITAGLIPTIN PHOSPHATE
     Indication: Diabetes mellitus
     Dosage: UNK
     Route: 048
     Dates: start: 20220511, end: 20230101
  3. METFORMIN HYDROCHLORIDE\SITAGLIPTIN PHOSPHATE [Concomitant]
     Active Substance: METFORMIN HYDROCHLORIDE\SITAGLIPTIN PHOSPHATE
     Dosage: UNK
     Route: 048
     Dates: start: 20230130
  4. VOGLIBOSE [Concomitant]
     Active Substance: VOGLIBOSE
     Indication: Diabetes mellitus
     Dosage: UNK
     Dates: start: 20220713
  5. ASPIRIN [Concomitant]
     Active Substance: ASPIRIN
     Indication: Coronary artery disease
     Dosage: UNK
     Dates: start: 20220316
  6. ISOSORBIDE MONONITRATE [Concomitant]
     Active Substance: ISOSORBIDE MONONITRATE
     Indication: Coronary artery disease
     Dosage: UNK
     Dates: start: 20220316
  7. IRBESARTAN [Concomitant]
     Active Substance: IRBESARTAN
     Indication: Hypertension
     Dosage: UNK
     Dates: start: 20220316
  8. ROSUVASTATIN CALCIUM [Concomitant]
     Active Substance: ROSUVASTATIN CALCIUM
     Indication: Hyperlipidaemia
     Dosage: UNK
     Dates: start: 20220316
  9. CALCIUM DOBESILATE [Concomitant]
     Active Substance: CALCIUM DOBESILATE
     Indication: Diabetic neuropathy
     Dosage: UNK
     Dates: start: 20220316

REACTIONS (1)
  - Urine ketone body present [Recovered/Resolved]

NARRATIVE: CASE EVENT DATE: 20221031
